FAERS Safety Report 7833257-5 (Version None)
Quarter: 2011Q4

REPORT INFORMATION
  Report Type: 
  Country: None (occurrence: None)
  Receive Date: 20111024
  Receipt Date: 20111017
  Transmission Date: 20120403
  Serious: Yes (Hospitalization)
  Sender: FDA-Public Use
  Company Number: FR-JNJFOC-20111008991

PATIENT
  Age: 62 Year
  Sex: Male

DRUGS (4)
  1. DURAGESIC-100 [Suspect]
     Route: 062
     Dates: start: 20110224
  2. PREDNISOLONE [Concomitant]
     Route: 065
  3. DURAGESIC-100 [Suspect]
     Indication: PRODUCT USED FOR UNKNOWN INDICATION
     Dosage: APPLIED 3 PATCHES
     Route: 062
  4. MORPHINE SULFATE [Concomitant]
     Route: 065

REACTIONS (2)
  - RESPIRATORY DEPRESSION [None]
  - ACCIDENTAL OVERDOSE [None]
